FAERS Safety Report 20378457 (Version 1)
Quarter: 2022Q1

REPORT INFORMATION
  Report Type: Spontaneous
  Country: US (occurrence: None)
  Receive Date: 20220125
  Receipt Date: 20220125
  Transmission Date: 20220423
  Serious: Yes (Death)
  Sender: FDA-Public Use
  Company Number: None

PATIENT
  Age: 25 Year
  Sex: Male
  Weight: 49 kg

DRUGS (7)
  1. TOCILIZUMAB [Suspect]
     Active Substance: TOCILIZUMAB
     Indication: COVID-19
     Dosage: OTHER FREQUENCY : ONCE;?
     Route: 042
     Dates: start: 20220110, end: 20220110
  2. DEXAMETHASONE [Concomitant]
     Active Substance: DEXAMETHASONE
     Dates: start: 20220109, end: 20220118
  3. CEFAZOLIN [Concomitant]
     Active Substance: CEFAZOLIN
     Dates: start: 20220121, end: 20220122
  4. CEFEPIME [Concomitant]
     Active Substance: CEFEPIME HYDROCHLORIDE
     Dates: start: 20220122, end: 20220123
  5. PIPERACILLIN AND TAZOBACTAM [Concomitant]
     Active Substance: PIPERACILLIN SODIUM\TAZOBACTAM SODIUM
     Dates: start: 20220120, end: 20220121
  6. SULFAMETHOXAZOLE\TRIMETHOPRIM [Concomitant]
     Active Substance: SULFAMETHOXAZOLE\TRIMETHOPRIM
     Dates: start: 20220122, end: 20220123
  7. VANCOMYCIN [Concomitant]
     Active Substance: VANCOMYCIN
     Dates: start: 20220120, end: 20220121

REACTIONS (13)
  - Restlessness [None]
  - Oxygen saturation decreased [None]
  - Resuscitation [None]
  - Pulseless electrical activity [None]
  - Tachypnoea [None]
  - Tachycardia [None]
  - Leukocytosis [None]
  - Staphylococcal infection [None]
  - Sputum culture positive [None]
  - Haemoglobin decreased [None]
  - Stenotrophomonas test positive [None]
  - Pseudomonas test positive [None]
  - Blood gases abnormal [None]

NARRATIVE: CASE EVENT DATE: 20220123
